FAERS Safety Report 18144476 (Version 1)
Quarter: 2020Q3

REPORT INFORMATION
  Report Type: Spontaneous
  Country: US (occurrence: US)
  Receive Date: 20200812
  Receipt Date: 20200812
  Transmission Date: 20201103
  Serious: No
  Sender: FDA-Public Use
  Company Number: None

PATIENT
  Age: 48 Year
  Sex: Female

DRUGS (1)
  1. REBIF REBIDOSE [Suspect]
     Active Substance: INTERFERON BETA-1A
     Indication: MULTIPLE SCLEROSIS
     Dosage: ?          OTHER FREQUENCY:THREE TIMES WEEKLY;?
     Route: 058
     Dates: start: 20180210, end: 20200610

REACTIONS (3)
  - Myalgia [None]
  - Palpitations [None]
  - Muscle spasms [None]

NARRATIVE: CASE EVENT DATE: 20200301
